FAERS Safety Report 11686510 (Version 1)
Quarter: 2015Q4

REPORT INFORMATION
  Report Type: Spontaneous
  Country: BR (occurrence: BR)
  Receive Date: 20151030
  Receipt Date: 20151030
  Transmission Date: 20160304
  Serious: Yes (Hospitalization)
  Sender: FDA-Public Use
  Company Number: BR-PFIZER INC-2015365439

PATIENT
  Age: 66 Year
  Sex: Female
  Weight: 51.7 kg

DRUGS (2)
  1. LIPITOR [Suspect]
     Active Substance: ATORVASTATIN CALCIUM
     Indication: BLOOD CHOLESTEROL
     Dosage: 20 MG, DAILY
     Route: 048
     Dates: start: 2008
  2. APRAZ [Concomitant]
     Indication: SLEEP DISORDER
     Dosage: UNK

REACTIONS (5)
  - Abdominal discomfort [Unknown]
  - Emphysema [Unknown]
  - Vomiting [Unknown]
  - Pneumonia [Unknown]
  - Nasopharyngitis [Unknown]

NARRATIVE: CASE EVENT DATE: 2014
